FAERS Safety Report 16923208 (Version 1)
Quarter: 2019Q4

REPORT INFORMATION
  Report Type: Spontaneous
  Country: US (occurrence: US)
  Receive Date: 20191016
  Receipt Date: 20191016
  Transmission Date: 20200122
  Serious: No
  Sender: FDA-Public Use
  Company Number: US-AMGEN-USASP2019165660

PATIENT
  Age: 79 Year
  Sex: Female

DRUGS (1)
  1. PROLIA [Suspect]
     Active Substance: DENOSUMAB
     Indication: OSTEOPOROSIS POSTMENOPAUSAL
     Dosage: 60 MILLIGRAM
     Route: 065
     Dates: start: 20190917, end: 2019

REACTIONS (6)
  - Headache [Unknown]
  - Incontinence [Not Recovered/Not Resolved]
  - Pain in extremity [Unknown]
  - Pelvic pain [Not Recovered/Not Resolved]
  - Bladder spasm [Not Recovered/Not Resolved]
  - Toothache [Unknown]

NARRATIVE: CASE EVENT DATE: 2019
